FAERS Safety Report 13071813 (Version 5)
Quarter: 2017Q1

REPORT INFORMATION
  Report Type: Spontaneous
  Country: JP (occurrence: JP)
  Receive Date: 20161229
  Receipt Date: 20170307
  Transmission Date: 20170428
  Serious: Yes (Other)
  Sender: FDA-Public Use
  Company Number: JP-PFIZER INC-2016599142

PATIENT
  Age: 64 Year
  Sex: Male
  Weight: 36.7 kg

DRUGS (20)
  1. FOSPHENYTOIN SODIUM. [Suspect]
     Active Substance: FOSPHENYTOIN SODIUM
     Indication: SEIZURE
     Dosage: 900 MG, (900 MG, 1 IN 1 D)
     Route: 041
     Dates: start: 20161201, end: 20161201
  2. MAXIPIME [Concomitant]
     Active Substance: CEFEPIME HYDROCHLORIDE
     Dosage: 3 G, 3X/DAY
     Route: 041
     Dates: start: 20161202, end: 20161206
  3. DOBUPUM [Concomitant]
     Active Substance: DOBUTAMINE HYDROCHLORIDE
     Indication: CIRCULATORY COLLAPSE
     Dosage: UNK
     Route: 041
     Dates: start: 20161130, end: 20161206
  4. PRECEDEX [Concomitant]
     Active Substance: DEXMEDETOMIDINE HYDROCHLORIDE
     Indication: SEDATION
     Dosage: UNK
     Route: 041
     Dates: start: 20161130, end: 20161204
  5. MAXIPIME [Concomitant]
     Active Substance: CEFEPIME HYDROCHLORIDE
     Indication: PNEUMONIA
     Dosage: 2 G, 2X/DAY
     Route: 041
     Dates: start: 20161122, end: 20161201
  6. SOLU-CORTEF [Concomitant]
     Active Substance: HYDROCORTISONE SODIUM SUCCINATE
     Dosage: 100 MG, 1X/DAY
     Route: 041
     Dates: start: 20161207, end: 20161207
  7. OMEPRAZOLE. [Concomitant]
     Active Substance: OMEPRAZOLE
     Dosage: 20 MG, 2X/DAY
     Route: 041
     Dates: start: 20161130, end: 20161205
  8. ALINAMIN F [Concomitant]
     Active Substance: FURSULTIAMINE HYDROCHLORIDE
     Indication: VITAMIN B1 DEFICIENCY
     Dosage: 500 MG, 3X/DAY (500 MG,3 IN 1 D)
     Route: 041
     Dates: start: 20161130, end: 20161203
  9. POTASSIUM CHLORIDE. [Concomitant]
     Active Substance: POTASSIUM CHLORIDE
     Indication: HYPOKALAEMIA
     Dosage: UNK
     Route: 041
     Dates: start: 20161130, end: 20161209
  10. POTASSIUM GLUCONATE [Concomitant]
     Active Substance: POTASSIUM GLUCONATE
     Dosage: UNK
     Route: 048
     Dates: start: 20161209
  11. SOLU-CORTEF [Concomitant]
     Active Substance: HYDROCORTISONE SODIUM SUCCINATE
     Dosage: 100 MG, 3X/DAY
     Route: 041
     Dates: start: 20161205, end: 20161205
  12. ALEVIATIN [Suspect]
     Active Substance: PHENYTOIN SODIUM
     Indication: SEIZURE
     Dosage: 200 MG (100MG, 2 IN 1 D)
     Route: 048
     Dates: start: 20161205, end: 20161210
  13. HEPARIN SODIUM. [Concomitant]
     Active Substance: HEPARIN SODIUM
     Dosage: UNK
     Route: 065
     Dates: start: 20161201
  14. FOSPHENYTOIN SODIUM. [Suspect]
     Active Substance: FOSPHENYTOIN SODIUM
     Dosage: 300 MG (300 MG, 1 IN 1 D)
     Route: 041
     Dates: start: 20161202, end: 20161204
  15. TAKECAB [Concomitant]
     Active Substance: VONOPRAZAN FUMURATE
     Dosage: UNK
     Route: 065
     Dates: start: 20161209
  16. SOLU-CORTEF [Concomitant]
     Active Substance: HYDROCORTISONE SODIUM SUCCINATE
     Indication: ADRENAL INSUFFICIENCY
     Dosage: 100 MG, 4X/DAY
     Route: 041
     Dates: start: 20161129, end: 20161204
  17. SOLU-CORTEF [Concomitant]
     Active Substance: HYDROCORTISONE SODIUM SUCCINATE
     Dosage: 100 MG, 2X/DAY
     Route: 041
     Dates: start: 20161206, end: 20161206
  18. NOREPINEPHRINE [Concomitant]
     Active Substance: NOREPINEPHRINE\NOREPINEPHRINE BITARTRATE
     Indication: CIRCULATORY COLLAPSE
     Dosage: UNK
     Route: 041
     Dates: start: 20161130, end: 20161207
  19. LANSOPRAZOLE. [Concomitant]
     Active Substance: LANSOPRAZOLE
     Dosage: UNK
     Route: 048
     Dates: start: 20161206, end: 20161209
  20. MIDAZOLAM [Concomitant]
     Active Substance: MIDAZOLAM HYDROCHLORIDE
     Indication: EPILEPSY
     Dosage: UNK
     Route: 041
     Dates: start: 20161130, end: 20161201

REACTIONS (2)
  - Anticonvulsant drug level increased [Recovered/Resolved]
  - Platelet count decreased [Recovered/Resolved]

NARRATIVE: CASE EVENT DATE: 20161205
